FAERS Safety Report 10816460 (Version 1)
Quarter: 2015Q1

REPORT INFORMATION
  Report Type: Spontaneous
  Country: FR (occurrence: FR)
  Receive Date: 20150218
  Receipt Date: 20150218
  Transmission Date: 20150721
  Serious: Yes (Hospitalization)
  Sender: FDA-Public Use
  Company Number: FR-SA-2015SA018290

PATIENT
  Age: 56 Year
  Sex: Female

DRUGS (2)
  1. COTRIATEC [Concomitant]
     Active Substance: HYDROCHLOROTHIAZIDE\RAMIPRIL
     Indication: HYPERTENSION
     Route: 048
  2. LASILIX [Suspect]
     Active Substance: FUROSEMIDE
     Indication: HYPERTENSION
     Route: 048
     Dates: start: 201409, end: 201501

REACTIONS (1)
  - Blood cortisol decreased [Recovered/Resolved]

NARRATIVE: CASE EVENT DATE: 201501
